FAERS Safety Report 5800627-6 (Version None)
Quarter: 2008Q3

REPORT INFORMATION
  Report Type: 
  Country: None (occurrence: None)
  Receive Date: 20080703
  Receipt Date: 20080620
  Transmission Date: 20090109
  Serious: No
  Sender: FDA-Public Use
  Company Number: US-ELI_LILLY_AND_COMPANY-US200706004211

PATIENT
  Sex: Female

DRUGS (6)
  1. CYMBALTA [Suspect]
     Indication: DEPRESSION
     Dosage: 90 MG, DAILY (1/D)
     Dates: start: 20061001, end: 20070501
  2. CLARITIN-D [Concomitant]
     Dosage: UNK, UNKNOWN
     Route: 065
  3. NORVASC [Concomitant]
     Dosage: UNK, UNKNOWN
     Route: 065
  4. TYLENOL /USA/ [Concomitant]
     Dosage: UNK, AS NEEDED
     Route: 065
  5. ALCOHOL [Concomitant]
  6. NASONEX [Concomitant]

REACTIONS (3)
  - ALANINE AMINOTRANSFERASE INCREASED [None]
  - ASPARTATE AMINOTRANSFERASE INCREASED [None]
  - BLOOD ALKALINE PHOSPHATASE INCREASED [None]
